FAERS Safety Report 9942111 (Version 1)
Quarter: 2014Q1

REPORT INFORMATION
  Report Type: Report from Study
  Country: US (occurrence: US)
  Receive Date: 20140303
  Receipt Date: 20140303
  Transmission Date: 20141002
  Serious: Yes (Hospitalization)
  Sender: FDA-Public Use
  Company Number: US-ABBVIE-13P-163-1043953-00

PATIENT
  Age: 58 Year
  Sex: Female
  Weight: 104.42 kg

DRUGS (27)
  1. HUMIRA [Suspect]
     Indication: RHEUMATOID ARTHRITIS
     Dates: start: 201201, end: 201205
  2. HUMIRA [Suspect]
     Dates: start: 20130121
  3. ALLEGRA [Concomitant]
     Indication: HYPERSENSITIVITY
  4. ASTAPRO [Concomitant]
     Indication: HYPERSENSITIVITY
  5. DYCLOFENIC CREAM [Concomitant]
     Indication: ARTHRALGIA
  6. FENTANYL PATCH [Concomitant]
     Indication: PAIN
  7. FOLIC ACID [Concomitant]
     Indication: VITAMIN SUPPLEMENTATION
  8. LIMBREL [Concomitant]
     Indication: PAIN
  9. LOVASTATIN [Concomitant]
     Indication: BLOOD CHOLESTEROL INCREASED
  10. METHOTREXATE [Concomitant]
     Indication: RHEUMATOID ARTHRITIS
  11. METAXALONE [Concomitant]
     Indication: PAIN
  12. NEXIUM [Concomitant]
     Indication: GASTROOESOPHAGEAL REFLUX DISEASE
  13. NEURONTIN [Concomitant]
     Indication: PAIN
  14. NORVASC [Concomitant]
     Indication: HYPERTENSION
  15. PAXIL [Concomitant]
     Indication: DEPRESSION
  16. PREMARIN CREAM [Concomitant]
     Indication: MENOPAUSE
  17. PLAQUINEL [Concomitant]
     Indication: RHEUMATOID ARTHRITIS
  18. REQUIP [Concomitant]
     Indication: MUSCLE SPASMS
  19. RESTORIL [Concomitant]
     Indication: INSOMNIA
  20. SINGULAIR [Concomitant]
     Indication: HYPERSENSITIVITY
  21. SYNTHROID [Concomitant]
     Indication: HYPOTHYROIDISM
  22. TOPOMAX [Concomitant]
     Indication: MIGRAINE
  23. RECLAST [Concomitant]
     Indication: OSTEOPOROSIS
     Dates: start: 201203, end: 201203
  24. NORCO [Concomitant]
     Indication: PAIN
  25. FLEXERIL [Concomitant]
     Indication: PAIN
  26. MULTIVITAMINS [Concomitant]
     Indication: VITAMIN SUPPLEMENTATION
  27. CRANBERRY [Concomitant]
     Indication: SUPPLEMENTATION THERAPY

REACTIONS (1)
  - Abdominal pain [Recovered/Resolved]
